FAERS Safety Report 4853533-8 (Version None)
Quarter: 2005Q4

REPORT INFORMATION
  Report Type: 
  Country: None (occurrence: None)
  Receive Date: 20051214
  Receipt Date: 20051202
  Transmission Date: 20060501
  Serious: Yes (Other)
  Sender: FDA-Public Use
  Company Number: GB-JNJFOC-20051201007

PATIENT
  Age: 5 Decade
  Sex: Female

DRUGS (1)
  1. RISPERDAL CONSTA [Suspect]
     Indication: DRUG USE FOR UNKNOWN INDICATION
     Dosage: DURATION OF 2-3 YEARS
     Route: 030

REACTIONS (2)
  - BLINDNESS [None]
  - NEUROPATHY [None]
